FAERS Safety Report 7392059-7 (Version None)
Quarter: 2011Q2

REPORT INFORMATION
  Report Type: 
  Country: None (occurrence: None)
  Receive Date: 20110404
  Receipt Date: 20110321
  Transmission Date: 20111010
  Serious: Yes (Hospitalization)
  Sender: FDA-Public Use
  Company Number: NL-JNJFOC-20110208298

PATIENT
  Age: 29 Year
  Sex: Female
  Weight: 64 kg

DRUGS (14)
  1. MESALAMINE [Concomitant]
     Indication: COLITIS ULCERATIVE
  2. OXYCODON [Concomitant]
  3. PARACETAMOL [Concomitant]
     Indication: ABDOMINAL PAIN
  4. REMICADE [Suspect]
     Indication: COLITIS ULCERATIVE
     Route: 042
  5. FENTANYL [Concomitant]
     Indication: ABDOMINAL PAIN
  6. TRAMADOL [Concomitant]
     Indication: ABDOMINAL PAIN
  7. METHADON [Concomitant]
     Indication: PROCEDURAL PAIN
  8. MESALAMINE [Concomitant]
  9. OXYCODON [Concomitant]
  10. PARACETAMOL [Concomitant]
     Indication: HEADACHE
  11. PARACETAMOL [Concomitant]
  12. REMICADE [Suspect]
     Indication: CROHN'S DISEASE
     Route: 042
  13. NADROPARIN [Concomitant]
     Indication: PROPHYLAXIS
     Dosage: 2850 IE ONCE
  14. PARACETAMOL [Concomitant]

REACTIONS (5)
  - HOSPITALISATION [None]
  - COLECTOMY [None]
  - COLOSTOMY [None]
  - COLITIS ULCERATIVE [None]
  - PROCTOCOLECTOMY [None]
